FAERS Safety Report 25098219 (Version 1)
Quarter: 2025Q1

REPORT INFORMATION
  Report Type: Spontaneous
  Country: PR (occurrence: PR)
  Receive Date: 20250320
  Receipt Date: 20250320
  Transmission Date: 20250409
  Serious: No
  Sender: ABBVIE
  Company Number: PR-ABBVIE-6186348

PATIENT
  Sex: Female

DRUGS (1)
  1. VYALEV [Suspect]
     Active Substance: FOSCARBIDOPA\FOSLEVODOPA
     Indication: Parkinson^s disease
     Route: 058
     Dates: start: 20250313

REACTIONS (3)
  - Catheter site haemorrhage [Unknown]
  - Catheter site inflammation [Unknown]
  - Catheter site induration [Unknown]

NARRATIVE: CASE EVENT DATE: 20250314
